FAERS Safety Report 5022241-5 (Version None)
Quarter: 2006Q2

REPORT INFORMATION
  Report Type: 
  Country: None (occurrence: None)
  Receive Date: 20060609
  Receipt Date: 20060605
  Transmission Date: 20061013
  Serious: Yes (Hospitalization)
  Sender: FDA-Public Use
  Company Number: 2006CG00998

PATIENT
  Age: 61 Year
  Sex: Female
  Weight: 95 kg

DRUGS (7)
  1. TENORMIN [Suspect]
     Indication: ESSENTIAL HYPERTENSION
     Route: 048
     Dates: start: 20060121
  2. NEURONTIN [Suspect]
     Indication: NEURALGIA
     Route: 048
     Dates: start: 20060126, end: 20060126
  3. NEURONTIN [Suspect]
     Indication: RADICULITIS
     Route: 048
     Dates: start: 20060126, end: 20060126
  4. NEURONTIN [Suspect]
     Indication: NEURITIS
     Route: 048
     Dates: start: 20060126, end: 20060126
  5. EUTHYRAL [Concomitant]
     Indication: POST PROCEDURAL HYPOTHYROIDISM
     Dosage: 100 + 20 UG QD
     Route: 048
     Dates: start: 20050615
  6. EFFEXOR [Concomitant]
     Indication: DEPRESSION
     Route: 048
     Dates: start: 20050601, end: 20060213
  7. LERCAN [Concomitant]
     Indication: ESSENTIAL HYPERTENSION
     Route: 048
     Dates: start: 20040828

REACTIONS (4)
  - ARTHRALGIA [None]
  - DIARRHOEA [None]
  - JOINT STIFFNESS [None]
  - PURPURA [None]
